FAERS Safety Report 12699795 (Version 1)
Quarter: 2016Q3

REPORT INFORMATION
  Report Type: Report from Study
  Country: CA (occurrence: CA)
  Receive Date: 20160830
  Receipt Date: 20160830
  Transmission Date: 20161109
  Serious: Yes (Other)
  Sender: FDA-Public Use
  Company Number: CA-JNJFOC-20160821383

PATIENT
  Age: 38 Year
  Sex: Female
  Weight: 60 kg

DRUGS (1)
  1. REMICADE [Suspect]
     Active Substance: INFLIXIMAB
     Indication: CROHN^S DISEASE
     Dosage: INFUSION 56
     Route: 042

REACTIONS (4)
  - Tooth abscess [Unknown]
  - Off label use [Unknown]
  - Product use issue [Unknown]
  - Gingival pain [Unknown]

NARRATIVE: CASE EVENT DATE: 201608
